FAERS Safety Report 18047815 (Version 1)
Quarter: 2020Q3

REPORT INFORMATION
  Report Type: Spontaneous
  Country: US (occurrence: US)
  Receive Date: 20200720
  Receipt Date: 20200720
  Transmission Date: 20201103
  Serious: Yes (Death, Other)
  Sender: FDA-Public Use
  Company Number: None

PATIENT

DRUGS (1)
  1. BLUMEN CLEAR ADVANCED HAND SANITIZER [Suspect]
     Active Substance: ALCOHOL

REACTIONS (11)
  - Metabolic acidosis [None]
  - Blood creatinine increased [None]
  - Overdose [None]
  - Multiple organ dysfunction syndrome [None]
  - Brain oedema [None]
  - Blood potassium increased [None]
  - Intentional product use issue [None]
  - Shock [None]
  - Encephalopathy [None]
  - Blood methanol increased [None]
  - Blood lactic acid increased [None]

NARRATIVE: CASE EVENT DATE: 20200716
